FAERS Safety Report 11277614 (Version 6)
Quarter: 2019Q3

REPORT INFORMATION
  Report Type: Spontaneous
  Country: US (occurrence: US)
  Receive Date: 20150716
  Receipt Date: 20190702
  Transmission Date: 20191004
  Serious: Yes (Hospitalization, Other)
  Sender: FDA-Public Use
  Company Number: US-DSJP-DSU-2015-122260

PATIENT

DRUGS (3)
  1. BENICAR [Suspect]
     Active Substance: OLMESARTAN MEDOXOMIL
     Dosage: 20 MG HALF PILL, UNK
     Dates: end: 20121217
  2. BENICAR [Suspect]
     Active Substance: OLMESARTAN MEDOXOMIL
     Dosage: 5 MG, QD
     Dates: start: 20120915, end: 201212
  3. BENICAR [Suspect]
     Active Substance: OLMESARTAN MEDOXOMIL
     Indication: HYPERTENSION
     Dosage: 40 MG, QD
     Route: 048
     Dates: start: 20060724, end: 20120915

REACTIONS (12)
  - Diverticulum [Unknown]
  - Dizziness [Unknown]
  - Acute kidney injury [Recovering/Resolving]
  - Hepatic cirrhosis [Recovering/Resolving]
  - Chronic kidney disease [Unknown]
  - Clostridium difficile infection [Recovered/Resolved]
  - Muscle atrophy [Unknown]
  - Hypotension [Unknown]
  - Product administration error [Unknown]
  - Coeliac disease [Recovering/Resolving]
  - Hepatic failure [Unknown]
  - Sprue-like enteropathy [Recovering/Resolving]

NARRATIVE: CASE EVENT DATE: 20120704
